FAERS Safety Report 21138966 (Version 1)
Quarter: 2022Q3

REPORT INFORMATION
  Report Type: Spontaneous
  Country: US (occurrence: US)
  Receive Date: 20220727
  Receipt Date: 20220727
  Transmission Date: 20221027
  Serious: No
  Sender: FDA-Public Use
  Company Number: US-NOVARTISTESTPH-NVSC2022US170209

PATIENT
  Sex: Male

DRUGS (2)
  1. MEKINIST [Suspect]
     Active Substance: TRAMETINIB DIMETHYL SULFOXIDE
     Indication: Metastases to central nervous system
     Dosage: 2 MG, QD
     Route: 048
     Dates: start: 202207
  2. TAFINLAR [Suspect]
     Active Substance: DABRAFENIB MESYLATE
     Indication: Metastases to central nervous system
     Dosage: 150 MG, Q12H
     Route: 048
     Dates: start: 202207

REACTIONS (2)
  - Nausea [Unknown]
  - Product use in unapproved indication [Unknown]
